FAERS Safety Report 21926210 (Version 1)
Quarter: 2023Q1

REPORT INFORMATION
  Report Type: Spontaneous
  Country: SE (occurrence: SE)
  Receive Date: 20230130
  Receipt Date: 20230130
  Transmission Date: 20230418
  Serious: Yes (Other)
  Sender: FDA-Public Use
  Company Number: None

PATIENT
  Age: 85 Year
  Sex: Female
  Weight: 100 kg

DRUGS (10)
  1. CYKLOKAPRON [Suspect]
     Active Substance: TRANEXAMIC ACID
     Indication: Hepatic haemorrhage
     Dosage: 3000 MILLIGRAM, QD
     Route: 048
     Dates: start: 20210927, end: 20211003
  2. LINAGLIPTIN [Concomitant]
     Active Substance: LINAGLIPTIN
     Dosage: 5 MILLIGRAM, QD, 5 MG 1T X1
     Route: 048
  3. FUROSEMIDE [Concomitant]
     Active Substance: FUROSEMIDE
     Dosage: 40 MILLIGRAM, QD, 40 MG 1T X1
     Route: 048
     Dates: start: 20210621
  4. ALLOPURINOL [Concomitant]
     Active Substance: ALLOPURINOL
     Dosage: 300 MILLIGRAM, QD, 300 MG 1T X1
     Route: 048
  5. Betolvex [Concomitant]
     Dosage: 1 MILLIGRAM, QD, 1 MG 1T X1
     Route: 048
  6. SERTRALINE HYDROCHLORIDE [Concomitant]
     Active Substance: SERTRALINE HYDROCHLORIDE
     Dosage: 50 MILLIGRAM, QD, 50 MG 1T X1
     Route: 048
  7. INSULIN HUMAN [Concomitant]
     Active Substance: INSULIN HUMAN
     Dosage: 28 INTERNATIONAL UNIT,100 IE/ML 14 IE X2, QD INJEC
     Route: 058
     Dates: start: 20210714
  8. OXAZEPAM [Concomitant]
     Active Substance: OXAZEPAM
     Dosage: 10 MILLIGRAM, QD, 10 MG 1T X1
     Route: 048
  9. ZOPICLONE [Concomitant]
     Active Substance: ZOPICLONE
     Dosage: 5 MILLIGRAM, QD, 5 MG 1T X1
     Route: 048
  10. MADOPAR QUICK MITE [Concomitant]
     Dosage: 6 DOSAGE FORM, QD, 50 MG/12,5
     Route: 048

REACTIONS (2)
  - Hallucination [Recovered/Resolved]
  - Confusional state [Recovered/Resolved]

NARRATIVE: CASE EVENT DATE: 20210927
